FAERS Safety Report 6220599-2 (Version None)
Quarter: 2009Q2

REPORT INFORMATION
  Report Type: 
  Country: None (occurrence: None)
  Receive Date: 20090610
  Receipt Date: 20090605
  Transmission Date: 20091009
  Serious: Yes (Life-Threatening, Hospitalization)
  Sender: FDA-Public Use
  Company Number: ES-ROCHE-634992

PATIENT
  Sex: Male
  Weight: 83 kg

DRUGS (7)
  1. CAPECITABINE [Suspect]
     Dosage: FREQUENCY: D2-D8, LAST DOSE RECEIVED PRIOR TO EVENT: 21 MAY 09
     Route: 048
     Dates: start: 20090430
  2. BEVACIZUMAB [Suspect]
     Dosage: FORM: INFUSION, LAST DOSE PRIOR TO EVENT: 14 MAY 2009
     Route: 042
     Dates: start: 20090430
  3. IRINOTECAN HCL [Suspect]
     Dosage: FORM: INFUSION, LAST DOSE RECEIVED PRIOR TO EVENT: 14MAY09
     Route: 042
     Dates: start: 20090430
  4. ENALAPRIL [Concomitant]
  5. FE [Concomitant]
     Dosage: DRUG: FE+2
     Dates: start: 20090429, end: 20090525
  6. HIDROCLOROTIAZIDA [Concomitant]
     Dates: start: 20090429, end: 20090525
  7. LACTITOL [Concomitant]
     Dates: start: 20090429, end: 20090525

REACTIONS (2)
  - LARGE INTESTINE PERFORATION [None]
  - PERITONEAL INFECTION [None]
